FAERS Safety Report 10944022 (Version 1)
Quarter: 2015Q1

REPORT INFORMATION
  Report Type: Spontaneous
  Country: US (occurrence: US)
  Receive Date: 20150323
  Receipt Date: 20150323
  Transmission Date: 20150721
  Serious: Yes (Death, Hospitalization, Other)
  Sender: FDA-Public Use
  Company Number: US-AUROBINDO-AUR-APL-2015-02354

PATIENT
  Age: 15 Year
  Sex: Male

DRUGS (1)
  1. MINOCYCLINE [Suspect]
     Active Substance: MINOCYCLINE\MINOCYCLINE HYDROCHLORIDE
     Indication: ACNE
     Dosage: UNK
     Route: 065

REACTIONS (28)
  - Coronary artery stenosis [Unknown]
  - Drug reaction with eosinophilia and systemic symptoms [Unknown]
  - Bacteraemia [Unknown]
  - Tubulointerstitial nephritis [Unknown]
  - Transient ischaemic attack [Unknown]
  - Pyrexia [Unknown]
  - Troponin increased [Unknown]
  - Osteomyelitis [Unknown]
  - Hypotension [Unknown]
  - Cardiac arrest [Fatal]
  - Septic embolus [Unknown]
  - Cardiac output increased [Unknown]
  - Ejection fraction decreased [Unknown]
  - Adrenal insufficiency [Unknown]
  - Brain natriuretic peptide increased [Unknown]
  - Vomiting [Unknown]
  - Ventricular tachycardia [Fatal]
  - Endocarditis staphylococcal [Unknown]
  - Tachycardia [Unknown]
  - Shock [Unknown]
  - Myocarditis [Unknown]
  - Eosinophilia [Unknown]
  - Rash [Unknown]
  - Swelling face [Unknown]
  - Condition aggravated [Unknown]
  - Cardiac failure congestive [Unknown]
  - Hepatitis [Unknown]
  - Erectile dysfunction [Unknown]
